FAERS Safety Report 16251793 (Version 2)
Quarter: 2019Q2

REPORT INFORMATION
  Report Type: Report from Study
  Country: HR (occurrence: HR)
  Receive Date: 20190429
  Receipt Date: 20190517
  Transmission Date: 20190711
  Serious: Yes (Death, Other)
  Sender: FDA-Public Use
  Company Number: HR-AMGEN-HRVSP2019066579

PATIENT
  Sex: Female

DRUGS (4)
  1. REVLIMID [Suspect]
     Active Substance: LENALIDOMIDE
     Indication: PLASMA CELL MYELOMA
     Dosage: 25 MILLIGRAM, ON 1- 21 DAYS OF CYCLE
     Route: 065
     Dates: start: 201603
  2. CARFILZOMIB [Suspect]
     Active Substance: CARFILZOMIB
     Dosage: 27 MILLIGRAM/SQ. METER, ON DAY 8, 9, 15 AND 16 IN FIRST CYCLE, AND DAYS ,1, 2, 8, 9, 15 AND 16 FROM
     Route: 065
  3. CARFILZOMIB [Suspect]
     Active Substance: CARFILZOMIB
     Indication: PLASMA CELL LEUKAEMIA
     Dosage: 20 MILLIGRAM/SQ. METER, ON DAY 1 AND 2
     Route: 065
     Dates: start: 201603
  4. DEXAMETHASONE. [Concomitant]
     Active Substance: DEXAMETHASONE
     Indication: PLASMA CELL MYELOMA
     Dosage: 40 MILLIGRAM, ON DAYS 1, 8, 15, 22 OF THE CYCLE
     Dates: start: 201603

REACTIONS (5)
  - Laboratory test abnormal [Unknown]
  - Disease progression [Fatal]
  - Anaemia [Recovered/Resolved]
  - Plasma cell leukaemia [Fatal]
  - Thrombocytopenia [Recovered/Resolved]

NARRATIVE: CASE EVENT DATE: 201711
